FAERS Safety Report 12696144 (Version 3)
Quarter: 2016Q3

REPORT INFORMATION
  Report Type: Report from Study
  Country: US (occurrence: US)
  Receive Date: 20160829
  Receipt Date: 20160921
  Transmission Date: 20161109
  Serious: Yes (Hospitalization)
  Sender: FDA-Public Use
  Company Number: US-BIOGEN-2016BI00283830

PATIENT
  Age: 31 Year
  Sex: Male

DRUGS (12)
  1. BACLOFEN. [Concomitant]
     Active Substance: BACLOFEN
     Indication: PRODUCT USED FOR UNKNOWN INDICATION
     Route: 037
  2. MEGACE [Concomitant]
     Active Substance: MEGESTROL ACETATE
     Indication: PRODUCT USED FOR UNKNOWN INDICATION
     Route: 048
  3. CLONAZEPAM. [Concomitant]
     Active Substance: CLONAZEPAM
     Indication: PRODUCT USED FOR UNKNOWN INDICATION
     Route: 048
  4. CHOLECALCIFEROL [Concomitant]
     Active Substance: CHOLECALCIFEROL
     Indication: SUPPLEMENTATION THERAPY
     Route: 048
  5. ASCORBIC ACID. [Concomitant]
     Active Substance: ASCORBIC ACID
     Indication: SUPPLEMENTATION THERAPY
     Route: 048
  6. VITAMIN E [Concomitant]
     Active Substance: .ALPHA.-TOCOPHEROL
     Indication: SUPPLEMENTATION THERAPY
     Route: 048
  7. IBUPROFEN. [Concomitant]
     Active Substance: IBUPROFEN
     Indication: PAIN
     Dosage: PRN
     Route: 048
  8. ALBUTEROL. [Concomitant]
     Active Substance: ALBUTEROL
     Indication: DYSPNOEA
     Route: 065
  9. TYSABRI [Suspect]
     Active Substance: NATALIZUMAB
     Indication: MULTIPLE SCLEROSIS
     Route: 042
     Dates: start: 20110304
  10. PROPANOLOL [Concomitant]
     Active Substance: PROPRANOLOL HYDROCHLORIDE
     Indication: TREMOR
     Route: 048
  11. MIRALAX [Concomitant]
     Active Substance: POLYETHYLENE GLYCOL 3350
     Indication: PRODUCT USED FOR UNKNOWN INDICATION
     Dosage: EVERY OTHER DAY
     Route: 048
  12. OXYCODONE [Concomitant]
     Active Substance: OXYCODONE
     Indication: PAIN
     Dosage: PRN
     Route: 048

REACTIONS (2)
  - Impaired healing [Not Recovered/Not Resolved]
  - Device failure [Recovered/Resolved]

NARRATIVE: CASE EVENT DATE: 20160812
